FAERS Safety Report 8031769 (Version 4)
Quarter: 2024Q3

REPORT INFORMATION
  Report Type: Spontaneous
  Country: FR (occurrence: FR)
  Receive Date: 20110712
  Receipt Date: 20240709
  Transmission Date: 20241017
  Serious: Yes (Hospitalization, Other)
  Sender: AUROBINDO
  Company Number: FR-MYLANLABS-2011S1013624

PATIENT
  Age: 73 Year
  Sex: Male

DRUGS (8)
  1. HYDROXYCHLOROQUINE [Suspect]
     Active Substance: HYDROXYCHLOROQUINE
     Indication: Whipple^s disease
     Dosage: UNK
     Route: 065
  2. CEFTRIAXONE [Suspect]
     Active Substance: CEFTRIAXONE\CEFTRIAXONE SODIUM
     Indication: Whipple^s disease
     Dosage: UNK
     Route: 065
  3. AZATHIOPRINE [Suspect]
     Active Substance: AZATHIOPRINE
     Indication: Whipple^s disease
     Dosage: UNK
     Route: 065
  4. AZATHIOPRINE [Suspect]
     Active Substance: AZATHIOPRINE
     Indication: Arthritis
     Dosage: UNK
     Route: 065
  5. AZATHIOPRINE [Suspect]
     Active Substance: AZATHIOPRINE
     Indication: Polyarthritis
     Dosage: UNK
     Route: 065
  6. AZATHIOPRINE [Suspect]
     Active Substance: AZATHIOPRINE
     Dosage: 50 MILLIGRAM, ONCE A DAY
     Route: 065
  7. AZATHIOPRINE [Suspect]
     Active Substance: AZATHIOPRINE
     Dosage: 100 MILLIGRAM, ONCE A DAY
     Route: 065
  8. COLCHICINE [Concomitant]
     Active Substance: COLCHICINE
     Indication: Product used for unknown indication
     Dosage: UNK
     Route: 065

REACTIONS (11)
  - White blood cell count increased [Unknown]
  - Cognitive disorder [Unknown]
  - Confusional state [Unknown]
  - C-reactive protein increased [Unknown]
  - Osteoarthritis [Unknown]
  - Arthralgia [Unknown]
  - Weight decreased [Unknown]
  - Arthritis [Unknown]
  - Pyrexia [Unknown]
  - Immune reconstitution inflammatory syndrome [Recovering/Resolving]
  - Whipple^s disease [Recovering/Resolving]
